FAERS Safety Report 13588579 (Version 4)
Quarter: 2018Q4

REPORT INFORMATION
  Report Type: Spontaneous
  Country: IT (occurrence: IT)
  Receive Date: 20170529
  Receipt Date: 20181121
  Transmission Date: 20190204
  Serious: Yes (Life-Threatening)
  Sender: FDA-Public Use
  Company Number: IT-009507513-1705ITA013270

PATIENT
  Age: 71 Year
  Sex: Female

DRUGS (5)
  1. FENTANEST [Suspect]
     Active Substance: FENTANYL CITRATE
     Indication: GENERAL ANAESTHESIA
     Dosage: (0.1 MG/ 2 ML),100 MICROGRAM, TOTAL
     Route: 042
     Dates: start: 20170518, end: 20170518
  2. PROPOFOL. [Suspect]
     Active Substance: PROPOFOL
     Indication: GENERAL ANAESTHESIA
     Dosage: 150 MG, TOTAL( ADMINISTERED 18 ML/H FOR ONE HOUR)
     Route: 042
     Dates: start: 20170518, end: 20170518
  3. ROCEPHIN [Concomitant]
     Active Substance: CEFTRIAXONE SODIUM
     Dosage: UNK
     Route: 030
     Dates: start: 201704
  4. SIRTAP [Suspect]
     Active Substance: CEFTRIAXONE SODIUM
     Indication: ANTIBIOTIC PROPHYLAXIS
     Dosage: 2 G, IN TOTAL
     Route: 042
     Dates: start: 20170518, end: 20170518
  5. ESMERON [Suspect]
     Active Substance: ROCURONIUM BROMIDE
     Indication: GENERAL ANAESTHESIA
     Dosage: 40 MG, IN TOTAL
     Route: 042
     Dates: start: 20170518, end: 20170518

REACTIONS (6)
  - Rash [Recovered/Resolved with Sequelae]
  - Tachycardia [Recovered/Resolved with Sequelae]
  - Oxygen saturation decreased [Recovered/Resolved with Sequelae]
  - Blood pressure decreased [Recovered/Resolved with Sequelae]
  - Bronchospasm [Recovered/Resolved with Sequelae]
  - Anaphylactic shock [Recovered/Resolved with Sequelae]

NARRATIVE: CASE EVENT DATE: 20170518
